FAERS Safety Report 6144382-1 (Version None)
Quarter: 2009Q2

REPORT INFORMATION
  Report Type: 
  Country: None (occurrence: None)
  Receive Date: 20090406
  Receipt Date: 20090331
  Transmission Date: 20091009
  Serious: No
  Sender: FDA-Public Use
  Company Number: US-B.I. PHARMACEUTICALS,INC./RIDGEFIELD-2009-BP-04033BP

PATIENT
  Sex: Female
  Weight: 57.61 kg

DRUGS (7)
  1. MELOXICAM [Suspect]
     Indication: RHEUMATOID ARTHRITIS
     Dosage: 15MG
     Route: 048
     Dates: start: 20070101, end: 20090101
  2. HUMIRA [Suspect]
     Indication: RHEUMATOID ARTHRITIS
     Dosage: 2.8571MG
     Route: 058
     Dates: start: 20071001, end: 20081201
  3. HUMIRA [Suspect]
     Dosage: 2.8571MG
     Route: 058
     Dates: start: 20090201
  4. ABATACEPT [Suspect]
     Indication: RHEUMATOID ARTHRITIS
     Route: 042
     Dates: start: 20090209, end: 20090209
  5. CAPTOPRIL [Concomitant]
     Indication: HYPERTENSION
     Dosage: 10MG
     Route: 048
  6. EZETIMIBE [Concomitant]
     Indication: BLOOD CHOLESTEROL INCREASED
     Dosage: 10MG
     Route: 048
  7. METHOTREXATE [Concomitant]
     Indication: RHEUMATOID ARTHRITIS
     Dosage: 1.7857MG
     Route: 048

REACTIONS (8)
  - DRUG INEFFECTIVE [None]
  - DYSPEPSIA [None]
  - INJECTION SITE HAEMORRHAGE [None]
  - INJECTION SITE PAIN [None]
  - NAUSEA [None]
  - POLYP [None]
  - ULCER HAEMORRHAGE [None]
  - URTICARIA [None]
